FAERS Safety Report 23359591 (Version 1)
Quarter: 2024Q1

REPORT INFORMATION
  Report Type: Other
  Country: US (occurrence: US)
  Receive Date: 20240103
  Receipt Date: 20240103
  Transmission Date: 20240409
  Serious: No
  Sender: FDA-Public Use
  Company Number: US-APOTEX-2023AP016941

PATIENT
  Age: 0 Year
  Sex: Male
  Weight: 0.58 kg

DRUGS (2)
  1. EMTRICITABINE\TENOFOVIR [Suspect]
     Active Substance: EMTRICITABINE\TENOFOVIR
     Indication: Antiretroviral therapy
     Dosage: TOTAL DAILY DOSE WAS 500 (UNIT UNKNOWN)  COURSE-1
     Route: 064
     Dates: start: 202301
  2. DOLUTEGRAVIR [Suspect]
     Active Substance: DOLUTEGRAVIR
     Indication: Antiretroviral therapy
     Dosage: TOTAL DAILY DOSE WAS 50 (UNIT UNKNOWN) COURSE-1
     Route: 064
     Dates: start: 202301

REACTIONS (3)
  - Premature baby [Unknown]
  - Low birth weight baby [Unknown]
  - Foetal exposure during pregnancy [Unknown]

NARRATIVE: CASE EVENT DATE: 20230101
